FAERS Safety Report 18622982 (Version 1)
Quarter: 2020Q4

REPORT INFORMATION
  Report Type: Spontaneous
  Country: US (occurrence: US)
  Receive Date: 20201216
  Receipt Date: 20201216
  Transmission Date: 20210114
  Serious: No
  Sender: FDA-Public Use
  Company Number: None

PATIENT
  Age: 46 Year
  Sex: Female
  Weight: 81 kg

DRUGS (2)
  1. NU-RING [Concomitant]
  2. PHENTERMINE. [Suspect]
     Active Substance: PHENTERMINE
     Indication: WEIGHT CONTROL
     Dates: start: 20101017, end: 20191221

REACTIONS (9)
  - Headache [None]
  - Fatigue [None]
  - Starvation [None]
  - Manufacturing materials issue [None]
  - Product counterfeit [None]
  - Hunger [None]
  - Drug ineffective [None]
  - Counterfeit product administered [None]
  - Victim of crime [None]

NARRATIVE: CASE EVENT DATE: 20191017
